FAERS Safety Report 9943226 (Version 1)
Quarter: 2014Q1

REPORT INFORMATION
  Report Type: Report from Study
  Country: JP (occurrence: JP)
  Receive Date: 20140303
  Receipt Date: 20140303
  Transmission Date: 20141002
  Serious: Yes (Other)
  Sender: FDA-Public Use
  Company Number: PHHY2014JP023460

PATIENT
  Age: 38 Year
  Sex: Female

DRUGS (1)
  1. LEPONEX / CLOZARIL [Suspect]

REACTIONS (1)
  - Schizophrenia [Unknown]
